FAERS Safety Report 6783745-8 (Version None)
Quarter: 2010Q2

REPORT INFORMATION
  Report Type: 
  Country: None (occurrence: None)
  Receive Date: 20100622
  Receipt Date: 20100615
  Transmission Date: 20101027
  Serious: Yes (Hospitalization)
  Sender: FDA-Public Use
  Company Number: DE-AMGEN-QUU419390

PATIENT
  Sex: Female
  Weight: 55 kg

DRUGS (3)
  1. ENBREL [Suspect]
     Indication: RHEUMATOID ARTHRITIS
     Route: 058
     Dates: start: 20100208, end: 20100526
  2. PREDNISOLONE [Concomitant]
     Indication: RHEUMATOID ARTHRITIS
     Route: 048
     Dates: start: 20090301, end: 20100201
  3. PREDNISOLONE [Concomitant]
     Route: 048
     Dates: start: 20100201

REACTIONS (2)
  - PNEUMONIA BACTERIAL [None]
  - PNEUMOTHORAX [None]
